FAERS Safety Report 16306058 (Version 3)
Quarter: 2020Q4

REPORT INFORMATION
  Report Type: Spontaneous
  Country: US (occurrence: US)
  Receive Date: 20190513
  Receipt Date: 20201229
  Transmission Date: 20210113
  Serious: Yes (Hospitalization, Other)
  Sender: FDA-Public Use
  Company Number: US-ASTRAZENECA-2019SE66155

PATIENT
  Age: 24169 Day
  Sex: Female
  Weight: 122.5 kg

DRUGS (84)
  1. NEXIUM [Suspect]
     Active Substance: ESOMEPRAZOLE MAGNESIUM
     Route: 048
  2. PRILOSEC [Suspect]
     Active Substance: OMEPRAZOLE MAGNESIUM
     Indication: GASTROOESOPHAGEAL REFLUX DISEASE
     Route: 048
     Dates: start: 20170921
  3. PRILOSEC [Suspect]
     Active Substance: OMEPRAZOLE MAGNESIUM
     Indication: GASTROOESOPHAGEAL REFLUX DISEASE
     Dosage: GENERIC
     Route: 065
     Dates: start: 20150807, end: 20151214
  4. BENAZEPRIL [Concomitant]
     Active Substance: BENAZEPRIL HYDROCHLORIDE
  5. OXAPROZIN. [Concomitant]
     Active Substance: OXAPROZIN
  6. HYDROCODONE-APAP [Concomitant]
     Active Substance: ACETAMINOPHEN\HYDROCODONE
  7. TIZANIDINE HYDROCHLORIDE. [Concomitant]
     Active Substance: TIZANIDINE HYDROCHLORIDE
  8. PRAVASTATIN SODIUM. [Concomitant]
     Active Substance: PRAVASTATIN SODIUM
  9. PREDNISOLONE. [Concomitant]
     Active Substance: PREDNISOLONE
  10. CYCLOBENZAPRINE. [Concomitant]
     Active Substance: CYCLOBENZAPRINE
  11. BUPROPION. [Concomitant]
     Active Substance: BUPROPION
  12. AMLOD/BENAZE [Concomitant]
  13. POTASSIUM CHLORIDE. [Concomitant]
     Active Substance: POTASSIUM CHLORIDE
  14. METHYLPREDNISOLONE. [Concomitant]
     Active Substance: METHYLPREDNISOLONE
  15. VIGAMOX [Concomitant]
     Active Substance: MOXIFLOXACIN HYDROCHLORIDE
  16. MELOXICAM. [Concomitant]
     Active Substance: MELOXICAM
  17. INTERIM [Concomitant]
  18. DUO-NEB [Concomitant]
  19. PRILOSEC [Suspect]
     Active Substance: OMEPRAZOLE MAGNESIUM
     Indication: GASTROOESOPHAGEAL REFLUX DISEASE
     Route: 048
     Dates: start: 20081006, end: 20081229
  20. PRILOSEC [Suspect]
     Active Substance: OMEPRAZOLE MAGNESIUM
     Indication: GASTROOESOPHAGEAL REFLUX DISEASE
     Route: 048
     Dates: start: 20160523, end: 20170523
  21. PRILOSEC [Suspect]
     Active Substance: OMEPRAZOLE MAGNESIUM
     Indication: GASTROOESOPHAGEAL REFLUX DISEASE
     Dosage: GENERIC
     Route: 065
     Dates: start: 20101008, end: 20110107
  22. PRILOSEC [Suspect]
     Active Substance: OMEPRAZOLE MAGNESIUM
     Indication: GASTROOESOPHAGEAL REFLUX DISEASE
     Dosage: GENERIC
     Route: 065
     Dates: start: 20110515
  23. IBUPROFEN. [Concomitant]
     Active Substance: IBUPROFEN
  24. CEPHALEXIN. [Concomitant]
     Active Substance: CEPHALEXIN
  25. SIMVASTATIN. [Concomitant]
     Active Substance: SIMVASTATIN
  26. CHLORTHALIDONE. [Concomitant]
     Active Substance: CHLORTHALIDONE
  27. CARISOPRODOL. [Concomitant]
     Active Substance: CARISOPRODOL
  28. TERBINAFINE HYDROCHLORIDE. [Concomitant]
     Active Substance: TERBINAFINE HYDROCHLORIDE
  29. RANITIDINE. [Concomitant]
     Active Substance: RANITIDINE
  30. PREDNISOLONE ACETATE. [Concomitant]
     Active Substance: PREDNISOLONE ACETATE
  31. BROMDAY [Concomitant]
     Active Substance: BROMFENAC SODIUM
  32. AMITRIPTYLINE [Concomitant]
     Active Substance: AMITRIPTYLINE
  33. VOLTAREN SODIUM [Concomitant]
  34. TRIAMCINOLONE [Concomitant]
     Active Substance: TRIAMCINOLONE
  35. XENICAL [Concomitant]
     Active Substance: ORLISTAT
  36. PRILOSEC [Suspect]
     Active Substance: OMEPRAZOLE MAGNESIUM
     Indication: GASTROOESOPHAGEAL REFLUX DISEASE
     Route: 048
     Dates: start: 20180223
  37. NUVIGIL [Concomitant]
     Active Substance: ARMODAFINIL
  38. GABAPENTIN. [Concomitant]
     Active Substance: GABAPENTIN
  39. CLONIDINE. [Concomitant]
     Active Substance: CLONIDINE
  40. OXYCODONE AND ACETAMINOPHEN [Concomitant]
     Active Substance: ACETAMINOPHEN\OXYCODONE HYDROCHLORIDE
  41. DICLOFENAC SODIUM. [Concomitant]
     Active Substance: DICLOFENAC SODIUM
  42. OXYCONTIN [Concomitant]
     Active Substance: OXYCODONE HYDROCHLORIDE
  43. FLEXERIL [Concomitant]
     Active Substance: CYCLOBENZAPRINE HYDROCHLORIDE
  44. MEGESTROL ACETATE. [Concomitant]
     Active Substance: MEGESTROL ACETATE
  45. PRILOSEC [Suspect]
     Active Substance: OMEPRAZOLE MAGNESIUM
     Indication: GASTROOESOPHAGEAL REFLUX DISEASE
     Dosage: GENERIC
     Route: 065
     Dates: start: 20160329, end: 20160509
  46. LIDOCAINE. [Concomitant]
     Active Substance: LIDOCAINE
  47. CLONIDINE HYDROCHLORIDE. [Concomitant]
     Active Substance: CLONIDINE HYDROCHLORIDE
  48. NAPROXEN. [Concomitant]
     Active Substance: NAPROXEN
  49. DOXYCYCLINE HYCLATE. [Concomitant]
     Active Substance: DOXYCYCLINE HYCLATE
  50. CALCIUM [Concomitant]
     Active Substance: CALCIUM
  51. TESSALON [Concomitant]
     Active Substance: BENZONATATE
  52. SOLU-MEDROL [Concomitant]
     Active Substance: METHYLPREDNISOLONE SODIUM SUCCINATE
  53. CAPSICUM OLEORESIN [Concomitant]
     Active Substance: CAPSICUM OLEORESIN
  54. TRAZONE [Concomitant]
  55. LYRICA [Concomitant]
     Active Substance: PREGABALIN
  56. ZETIA [Concomitant]
     Active Substance: EZETIMIBE
  57. RELAFEN [Concomitant]
     Active Substance: NABUMETONE
  58. ZITHROMAX [Concomitant]
     Active Substance: AZITHROMYCIN DIHYDRATE
  59. BUPROPION HYDROCHLORIDE. [Concomitant]
     Active Substance: BUPROPION HYDROCHLORIDE
  60. PRILOSEC OTC [Suspect]
     Active Substance: OMEPRAZOLE MAGNESIUM
     Indication: GASTROOESOPHAGEAL REFLUX DISEASE
     Route: 048
  61. PREVACID [Suspect]
     Active Substance: LANSOPRAZOLE
     Route: 065
  62. DEXTROAMPHET SACCHARAT, AMPHET ASPARTATE, DEXTROAMPHET SULFATE AND AMPHET SULFAT [Concomitant]
     Active Substance: AMPHETAMINE ASPARTATE\AMPHETAMINE SULFATE\DEXTROAMPHETAMINE SACCHARATE\DEXTROAMPHETAMINE SULFATE
  63. CITALOPRAM [Concomitant]
     Active Substance: CITALOPRAM HYDROBROMIDE
  64. PROAIR HFA [Concomitant]
     Active Substance: ALBUTEROL SULFATE
  65. ALBUTEROL. [Concomitant]
     Active Substance: ALBUTEROL
  66. VOLTAREN [Concomitant]
     Active Substance: DICLOFENAC SODIUM
  67. SULFA [Concomitant]
     Active Substance: UNSPECIFIED INGREDIENT
  68. ADDERALL [Concomitant]
     Active Substance: AMPHETAMINE ASPARTATE\AMPHETAMINE SULFATE\DEXTROAMPHETAMINE SACCHARATE\DEXTROAMPHETAMINE SULFATE
  69. PRILOSEC [Suspect]
     Active Substance: OMEPRAZOLE MAGNESIUM
     Indication: GASTROOESOPHAGEAL REFLUX DISEASE
     Route: 048
     Dates: start: 20090330
  70. DEXTROAMPHETAMINE. [Concomitant]
     Active Substance: DEXTROAMPHETAMINE
  71. HYDROCODONE [Concomitant]
     Active Substance: HYDROCODONE
  72. TRAMADOL. [Concomitant]
     Active Substance: TRAMADOL
  73. ZANTAC [Concomitant]
     Active Substance: RANITIDINE HYDROCHLORIDE
  74. MODAFINIL. [Concomitant]
     Active Substance: MODAFINIL
  75. ATORVASTATIN [Concomitant]
     Active Substance: ATORVASTATIN
  76. VESICARE [Concomitant]
     Active Substance: SOLIFENACIN SUCCINATE
  77. ZOLPIDEM TARTRATE. [Concomitant]
     Active Substance: ZOLPIDEM TARTRATE
  78. MULTIVITAMINS [Concomitant]
     Active Substance: VITAMINS
  79. FUROSEMIDE. [Concomitant]
     Active Substance: FUROSEMIDE
  80. ONDANSETRON HYDROCHLORIDE. [Concomitant]
     Active Substance: ONDANSETRON HYDROCHLORIDE
  81. BENAZEPRIL-HYDROCHLOROTHIAZIDE [Concomitant]
  82. SULFONAMIDE [Concomitant]
     Active Substance: UNSPECIFIED INGREDIENT
  83. FENTANYL. [Concomitant]
     Active Substance: FENTANYL
  84. UNISOM SLEEPTABS [Concomitant]
     Active Substance: DOXYLAMINE SUCCINATE

REACTIONS (4)
  - Renal failure [Unknown]
  - Chronic kidney disease [Not Recovered/Not Resolved]
  - Acute kidney injury [Unknown]
  - Gastrooesophageal reflux disease [Not Recovered/Not Resolved]

NARRATIVE: CASE EVENT DATE: 20150924
